FAERS Safety Report 6157142-2 (Version None)
Quarter: 2009Q2

REPORT INFORMATION
  Report Type: 
  Country: None (occurrence: None)
  Receive Date: 20090416
  Receipt Date: 20090408
  Transmission Date: 20091009
  Serious: Yes (Other)
  Sender: FDA-Public Use
  Company Number: US-JNJFOC-20090402354

PATIENT
  Sex: Male

DRUGS (11)
  1. REMICADE [Suspect]
     Indication: COLITIS
     Route: 042
  2. SINGULAIR [Concomitant]
  3. PREDNISONE TAB [Concomitant]
  4. LISINOPRIL [Concomitant]
  5. HYDROCODONE BITARTRATE [Concomitant]
  6. ACETAMINOPHEN [Concomitant]
  7. ALTRAM [Concomitant]
  8. ASACOL [Concomitant]
  9. CHANTIX [Concomitant]
  10. DIAZEPAM [Concomitant]
  11. INHALERS [Concomitant]

REACTIONS (1)
  - CARDIOMYOPATHY [None]
